FAERS Safety Report 24654593 (Version 3)
Quarter: 2024Q4

REPORT INFORMATION
  Report Type: Report from Study
  Country: IT (occurrence: IT)
  Receive Date: 20241122
  Receipt Date: 20241218
  Transmission Date: 20250114
  Serious: Yes (Hospitalization)
  Sender: PFIZER
  Company Number: None

PATIENT
  Age: 73 Year
  Sex: Male

DRUGS (13)
  1. MEDROL [Suspect]
     Active Substance: METHYLPREDNISOLONE
     Dosage: 160 MG (10 TABLETS OF 16 MG (160 MG))
     Route: 048
     Dates: start: 20240927, end: 20240927
  2. PANTOPRAZOLE [Suspect]
     Active Substance: PANTOPRAZOLE
     Dosage: 56 TABLETS OF 40 MG  (2240 MG TOTAL)
     Route: 048
     Dates: start: 20240927, end: 20240927
  3. BACTRIM [Suspect]
     Active Substance: SULFAMETHOXAZOLE\TRIMETHOPRIM
     Dosage: 8 TABLETS 800/160 MG
     Route: 048
     Dates: start: 20240927, end: 20240927
  4. FLUOXETINE HYDROCHLORIDE [Suspect]
     Active Substance: FLUOXETINE HYDROCHLORIDE
     Dosage: 5 TABLETS OF 20 MG (100 MG)
     Route: 048
     Dates: start: 20240927, end: 20240927
  5. ACETAMINOPHEN [Suspect]
     Active Substance: ACETAMINOPHEN
     Dosage: 8 TABLETS OF  1 G (8 G)
     Route: 048
     Dates: start: 20240927, end: 20240927
  6. XANAX [Suspect]
     Active Substance: ALPRAZOLAM
     Dosage: 10 COMPRESSE DA 0.5 MG (5 MG)
     Route: 048
     Dates: start: 20240927, end: 20240927
  7. AUGMENTIN [Suspect]
     Active Substance: AMOXICILLIN\CLAVULANATE POTASSIUM
     Dosage: 6 TABLETS OF 1 G (6 G)
     Route: 048
     Dates: start: 20240927, end: 20240927
  8. IBUPROFEN [Suspect]
     Active Substance: IBUPROFEN
     Dosage: 15 TABLETS OF 400 MG (6 G)
     Route: 048
     Dates: start: 20240927, end: 20240927
  9. CLOPIDOGREL [Suspect]
     Active Substance: CLOPIDOGREL BISULFATE
     Dosage: 42 TABLETS OF 75 MG (3150 MG TOTAL)
     Route: 048
     Dates: start: 20240927, end: 20240927
  10. ASPIRIN [Suspect]
     Active Substance: ASPIRIN
     Dosage: 20 TABLETS OF 100 MG (2 G)
     Route: 048
     Dates: start: 20240927, end: 20240927
  11. ATORVASTATIN [Suspect]
     Active Substance: ATORVASTATIN
     Dosage: 56 TABLETS OF 40 MG
     Route: 048
     Dates: start: 20240927, end: 20240927
  12. CIPROFLOXACIN HYDROCHLORIDE [Suspect]
     Active Substance: CIPROFLOXACIN HYDROCHLORIDE
     Dosage: 30 TABLETS OF 500 MG (15 G)
     Route: 048
     Dates: start: 20240927, end: 20240927
  13. ACYCLOVIR [Suspect]
     Active Substance: ACYCLOVIR
     Dosage: 7 TABLETS OG  800 MG (5600 MG TOT)
     Route: 048
     Dates: start: 20240927, end: 20240927

REACTIONS (4)
  - Drug abuse [Unknown]
  - Poisoning [Unknown]
  - Hypotension [Unknown]
  - Tachycardia [Unknown]

NARRATIVE: CASE EVENT DATE: 20240927
